FAERS Safety Report 7145105-X (Version None)
Quarter: 2010Q4

REPORT INFORMATION
  Report Type: 
  Country: None (occurrence: None)
  Receive Date: 20101208
  Receipt Date: 20101204
  Transmission Date: 20110411
  Serious: Yes (Life-Threatening, Hospitalization)
  Sender: FDA-Public Use
  Company Number: PHHY2010TZ18695

PATIENT
  Sex: Female
  Weight: 17 kg

DRUGS (1)
  1. COARTEM [Suspect]
     Dosage: 2 TABLETS BID X 3/7
     Route: 048
     Dates: start: 20090516, end: 20090518

REACTIONS (4)
  - JOINT STIFFNESS [None]
  - MENINGITIS [None]
  - MUSCULOSKELETAL STIFFNESS [None]
  - PYREXIA [None]
